FAERS Safety Report 17861166 (Version 1)
Quarter: 2020Q2

REPORT INFORMATION
  Report Type: Spontaneous
  Country: FR (occurrence: FR)
  Receive Date: 20200604
  Receipt Date: 20200604
  Transmission Date: 20200714
  Serious: Yes (Death)
  Sender: FDA-Public Use
  Company Number: FR-BAYER-2020-040608

PATIENT
  Age: 56 Year
  Sex: Male

DRUGS (7)
  1. ALFUZOSIN [Concomitant]
     Active Substance: ALFUZOSIN
     Dosage: 10
  2. METOCLOPRAMIDE. [Concomitant]
     Active Substance: METOCLOPRAMIDE
     Dosage: 10 MG
  3. ESOMEPRAZOLE. [Concomitant]
     Active Substance: ESOMEPRAZOLE MAGNESIUM
     Dosage: 40 MG
  4. VENLAFAXINE [Concomitant]
     Active Substance: VENLAFAXINE HYDROCHLORIDE
     Dosage: 75 MG
  5. INNOHEP [Concomitant]
     Active Substance: TINZAPARIN SODIUM
     Dosage: UNK
  6. STIVARGA [Suspect]
     Active Substance: REGORAFENIB
     Indication: METASTASES TO LIVER
  7. STIVARGA [Suspect]
     Active Substance: REGORAFENIB
     Indication: COLON CANCER METASTATIC
     Dosage: 160 MG DAILY FOR ABOUT 1 WEEK
     Route: 048
     Dates: start: 20200116

REACTIONS (3)
  - Product residue present [Recovered/Resolved]
  - Death [Fatal]
  - Product solubility abnormal [Recovered/Resolved]

NARRATIVE: CASE EVENT DATE: 20200116
